FAERS Safety Report 13769808 (Version 1)
Quarter: 2017Q3

REPORT INFORMATION
  Report Type: Report from Study
  Country: GB (occurrence: GB)
  Receive Date: 20170719
  Receipt Date: 20170719
  Transmission Date: 20171127
  Serious: Yes (Death, Other)
  Sender: FDA-Public Use
  Company Number: GB-MYLANLABS-2017M1042848

PATIENT

DRUGS (3)
  1. CIDOFOVIR. [Suspect]
     Active Substance: CIDOFOVIR
     Indication: ANTIVIRAL PROPHYLAXIS
     Route: 042
  2. GANCICLOVIR. [Suspect]
     Active Substance: GANCICLOVIR
     Indication: ANTIVIRAL PROPHYLAXIS
     Route: 042
  3. FOSCARNET [Suspect]
     Active Substance: FOSCARNET
     Indication: ANTIVIRAL PROPHYLAXIS
     Route: 042

REACTIONS (2)
  - Cytomegalovirus viraemia [Fatal]
  - Pathogen resistance [Fatal]
